FAERS Safety Report 15190126 (Version 1)
Quarter: 2018Q3

REPORT INFORMATION
  Report Type: Other
  Country: PL (occurrence: PL)
  Receive Date: 20180724
  Receipt Date: 20180724
  Transmission Date: 20181010
  Serious: Yes (Life-Threatening)
  Sender: FDA-Public Use
  Company Number: PL-B. BRAUN MEDICAL INC.-2052651

PATIENT
  Age: 5 Year
  Sex: Female
  Weight: 20 kg

DRUGS (1)
  1. LIDOCAINE HYDROCHLORIDE AND DEXTROSE [Suspect]
     Active Substance: DEXTROSE\LIDOCAINE HYDROCHLORIDE
     Indication: ANAESTHESIA

REACTIONS (3)
  - Facial paralysis [Recovered/Resolved]
  - Laryngospasm [None]
  - Bradycardia [None]
